FAERS Safety Report 9792321 (Version 1)
Quarter: 2014Q1

REPORT INFORMATION
  Report Type: Spontaneous
  Country: US (occurrence: US)
  Receive Date: 20140102
  Receipt Date: 20140102
  Transmission Date: 20141002
  Serious: No
  Sender: FDA-Public Use
  Company Number: US-BIOGENIDEC-2013BI122519

PATIENT
  Sex: Female

DRUGS (2)
  1. TECFIDERA [Suspect]
     Indication: MULTIPLE SCLEROSIS
  2. TECFIDERA [Suspect]
     Indication: MULTIPLE SCLEROSIS
     Dates: start: 201312

REACTIONS (6)
  - Nervous system disorder [Not Recovered/Not Resolved]
  - Pain [Not Recovered/Not Resolved]
  - Headache [Not Recovered/Not Resolved]
  - Multiple allergies [Not Recovered/Not Resolved]
  - Stress [Not Recovered/Not Resolved]
  - Hot flush [Not Recovered/Not Resolved]
